FAERS Safety Report 10011798 (Version 1)
Quarter: 2014Q1

REPORT INFORMATION
  Report Type: Spontaneous
  Country: BE (occurrence: BE)
  Receive Date: 20140314
  Receipt Date: 20140314
  Transmission Date: 20141002
  Serious: Yes (Other)
  Sender: FDA-Public Use
  Company Number: BE-ASTRAZENECA-2014SE16803

PATIENT
  Sex: 0

DRUGS (1)
  1. BRILIQUE [Suspect]
     Route: 048
     Dates: start: 2014

REACTIONS (2)
  - Thrombosis in device [Unknown]
  - Drug resistance [Unknown]
